FAERS Safety Report 8980574 (Version 2)
Quarter: 2013Q1

REPORT INFORMATION
  Report Type: Spontaneous
  Country: US (occurrence: US)
  Receive Date: 20121221
  Receipt Date: 20130121
  Transmission Date: 20140127
  Serious: Yes (Other)
  Sender: FDA-Public Use
  Company Number: US-FRI-1000041127

PATIENT
  Sex: Male

DRUGS (7)
  1. VIIBRYD [Suspect]
     Indication: MAJOR DEPRESSION
     Dosage: 10 MG
     Dates: start: 20110926, end: 20111004
  2. VIIBRYD [Suspect]
     Dosage: 20 MG
     Dates: start: 20111005, end: 201110
  3. VIIBRYD [Suspect]
     Dosage: 30 MG
     Dates: start: 201110, end: 201110
  4. VIIBRYD [Suspect]
     Dosage: 40 MG
     Dates: start: 201110, end: 20111018
  5. VIIBRYD [Suspect]
     Dosage: 20 MG
     Dates: start: 20111019, end: 20120212
  6. VIIBRYD [Suspect]
     Dosage: 10 MG
     Dates: start: 20120213, end: 20121022
  7. VIIBRYD [Suspect]
     Indication: MAJOR DEPRESSION
     Dosage: 15 MG
     Dates: start: 20121023, end: 20121119

REACTIONS (1)
  - Cerebrovascular accident [Recovered/Resolved]
